FAERS Safety Report 6538520-6 (Version None)
Quarter: 2010Q1

REPORT INFORMATION
  Report Type: 
  Country: None (occurrence: None)
  Receive Date: 20100111
  Receipt Date: 20100105
  Transmission Date: 20100710
  Serious: Yes (Disabling)
  Sender: FDA-Public Use
  Company Number: 2010AL000039

PATIENT
  Age: 54 Year
  Sex: Female

DRUGS (1)
  1. FLUVOXAMINE MALEATE  (PUREPAC) [Suspect]
     Indication: MAJOR DEPRESSION
     Dosage: 50 MG; QD;

REACTIONS (4)
  - DEAFNESS TRANSITORY [None]
  - DEAFNESS UNILATERAL [None]
  - MIXED DEAFNESS [None]
  - TINNITUS [None]
